FAERS Safety Report 23533680 (Version 1)
Quarter: 2024Q1

REPORT INFORMATION
  Report Type: Spontaneous
  Country: US (occurrence: US)
  Receive Date: 20240216
  Receipt Date: 20240216
  Transmission Date: 20240410
  Serious: No
  Sender: FDA-Public Use
  Company Number: US-ABBVIE-5633293

PATIENT
  Age: 15 Year
  Sex: Male
  Weight: 56.699 kg

DRUGS (8)
  1. HUMIRA [Suspect]
     Active Substance: ADALIMUMAB
     Indication: Psoriatic arthropathy
     Dosage: FORM STRENGTH:40 MILLIGRAM
     Route: 058
     Dates: end: 20240203
  2. HUMIRA [Suspect]
     Active Substance: ADALIMUMAB
     Dosage: FORM STRENGTH:40 MILLIGRAM
     Route: 058
     Dates: start: 20240208
  3. FOLIC ACID [Concomitant]
     Active Substance: FOLIC ACID
     Indication: Antiinflammatory therapy
  4. Msm with glucosamine [Concomitant]
     Indication: Antiinflammatory therapy
  5. MELOXICAM [Concomitant]
     Active Substance: MELOXICAM
     Indication: Psoriatic arthropathy
  6. MAGNESIUM [Concomitant]
     Active Substance: MAGNESIUM
     Indication: Antiinflammatory therapy
  7. HERBALS\TURMERIC [Concomitant]
     Active Substance: HERBALS\TURMERIC
     Indication: Antiinflammatory therapy
  8. PREDNISONE [Concomitant]
     Active Substance: PREDNISONE
     Indication: Psoriatic arthropathy

REACTIONS (6)
  - Wrong technique in product usage process [Not Recovered/Not Resolved]
  - Headache [Recovered/Resolved]
  - Cough [Not Recovered/Not Resolved]
  - Wrong technique in product usage process [Not Recovered/Not Resolved]
  - Unevaluable event [Not Recovered/Not Resolved]
  - Pyrexia [Recovered/Resolved]

NARRATIVE: CASE EVENT DATE: 20240126
